FAERS Safety Report 7393567-5 (Version None)
Quarter: 2011Q2

REPORT INFORMATION
  Report Type: 
  Country: None (occurrence: None)
  Receive Date: 20110405
  Receipt Date: 20110401
  Transmission Date: 20111010
  Serious: Yes (Death, Other)
  Sender: FDA-Public Use
  Company Number: IT-BAYER-2011-028978

PATIENT
  Age: 57 Year
  Sex: Male

DRUGS (3)
  1. NEXAVAR [Suspect]
     Indication: ACUTE MYELOID LEUKAEMIA RECURRENT
     Dosage: 200 MG, BID
  2. NEXAVAR [Suspect]
     Dosage: 400 MG, BID
  3. HYDROXYUREA [Concomitant]
     Indication: LEUKOCYTOSIS

REACTIONS (2)
  - PANCYTOPENIA [None]
  - DEATH [None]
